FAERS Safety Report 13343389 (Version 1)
Quarter: 2017Q1

REPORT INFORMATION
  Report Type: Spontaneous
  Country: SE (occurrence: SE)
  Receive Date: 20170316
  Receipt Date: 20170316
  Transmission Date: 20170428
  Serious: Yes (Hospitalization)
  Sender: FDA-Public Use
  Company Number: SE-MUNDIPHARMA DS AND PHARMACOVIGILANCE-GBR-2017-0044001

PATIENT
  Age: 90 Year
  Sex: Female
  Weight: 49 kg

DRUGS (8)
  1. BEHEPAN [Concomitant]
     Active Substance: HYDROXOCOBALAMIN
  2. TROMBYL [Concomitant]
     Active Substance: ASPIRIN
  3. ESIDREX [Concomitant]
     Active Substance: HYDROCHLOROTHIAZIDE
  4. FOLACIN                            /00024201/ [Concomitant]
     Active Substance: FOLIC ACID
  5. ALVEDON [Concomitant]
     Active Substance: ACETAMINOPHEN
  6. MIRTAZAPIN ACTAVIS [Concomitant]
     Active Substance: MIRTAZAPINE
  7. SOBRIL [Concomitant]
     Active Substance: OXAZEPAM
  8. NORSPAN [Suspect]
     Active Substance: BUPRENORPHINE
     Indication: OSTEOARTHRITIS
     Dosage: 120 MCG, DAILY
     Route: 062
     Dates: start: 20140922, end: 20141230

REACTIONS (3)
  - Myocardial infarction [Recovered/Resolved]
  - Accidental overdose [Recovered/Resolved]
  - Altered state of consciousness [Recovered/Resolved]

NARRATIVE: CASE EVENT DATE: 20141230
